FAERS Safety Report 20481127 (Version 3)
Quarter: 2022Q1

REPORT INFORMATION
  Report Type: Report from Study
  Country: JP (occurrence: JP)
  Receive Date: 20220216
  Receipt Date: 20220317
  Transmission Date: 20220423
  Serious: Yes (Death)
  Sender: FDA-Public Use
  Company Number: JP-JNJFOC-20211020063

PATIENT
  Age: 77 Year
  Sex: Male
  Weight: 38.8 kg

DRUGS (25)
  1. SIRTURO [Suspect]
     Active Substance: BEDAQUILINE FUMARATE
     Indication: Pulmonary tuberculosis
     Route: 048
     Dates: start: 20210720, end: 20210802
  2. SIRTURO [Suspect]
     Active Substance: BEDAQUILINE FUMARATE
     Route: 048
     Dates: start: 20210804, end: 20210804
  3. SIRTURO [Suspect]
     Active Substance: BEDAQUILINE FUMARATE
     Route: 048
     Dates: start: 20210809, end: 20211005
  4. ZYVOX [Suspect]
     Active Substance: LINEZOLID
     Indication: Pulmonary tuberculosis
     Route: 048
     Dates: start: 20210720, end: 20210804
  5. ZYVOX [Suspect]
     Active Substance: LINEZOLID
     Route: 048
     Dates: start: 2021, end: 20211005
  6. DELAMANID [Suspect]
     Active Substance: DELAMANID
     Indication: Pulmonary tuberculosis
     Dosage: DOSE UNKNOWN
     Route: 048
     Dates: start: 20210720, end: 20210804
  7. DELAMANID [Suspect]
     Active Substance: DELAMANID
     Dosage: DOSE UNKNOWN
     Route: 048
     Dates: start: 20210809, end: 20211005
  8. CLOFAZIMINE [Suspect]
     Active Substance: CLOFAZIMINE
     Indication: Pulmonary tuberculosis
     Route: 048
     Dates: start: 20210720, end: 20210804
  9. CYCLOSERINE [Concomitant]
     Active Substance: CYCLOSERINE
     Indication: Pulmonary tuberculosis
     Route: 048
     Dates: end: 20211005
  10. LEVOFLOXACIN HEMIHYDRATE [Concomitant]
     Active Substance: LEVOFLOXACIN
     Indication: Pulmonary tuberculosis
     Dosage: DOSE UNKNOWN
     Route: 048
     Dates: start: 20210720, end: 20211005
  11. AMLODIPINE [Concomitant]
     Active Substance: AMLODIPINE BESYLATE
     Indication: Hypertension
     Route: 048
     Dates: end: 20211005
  12. POLAPREZINC [Concomitant]
     Active Substance: POLAPREZINC
     Indication: Zinc deficiency
     Route: 048
     Dates: end: 20211005
  13. SODIUM CHLORIDE [Concomitant]
     Active Substance: SODIUM CHLORIDE
     Indication: Hyponatraemia
     Route: 048
     Dates: end: 20211005
  14. CALCIUM GLUCONATE HYDRATE [Concomitant]
     Indication: Hypokalaemia
     Route: 048
     Dates: end: 20210808
  15. CALCIUM GLUCONATE HYDRATE [Concomitant]
     Route: 048
     Dates: start: 2021, end: 20210929
  16. MIYA-BM [Concomitant]
     Active Substance: CLOSTRIDIUM BUTYRICUM SPORES STRAIN M-55
     Indication: Gastroenteritis
     Route: 048
     Dates: end: 20211005
  17. LOPERAMIDE [Concomitant]
     Active Substance: LOPERAMIDE
     Indication: Gastroenteritis
     Route: 048
     Dates: start: 20210810, end: 20211005
  18. ROZEREM [Concomitant]
     Active Substance: RAMELTEON
     Indication: Insomnia
     Route: 048
     Dates: start: 20210819, end: 20211005
  19. AMPICILLIN SODIUM\SULBACTAM SODIUM [Concomitant]
     Active Substance: AMPICILLIN SODIUM\SULBACTAM SODIUM
     Indication: Pneumonia aspiration
     Route: 065
     Dates: end: 20210813
  20. PIPERACILLIN SODIUM\TAZOBACTAM SODIUM [Concomitant]
     Active Substance: PIPERACILLIN SODIUM\TAZOBACTAM SODIUM
     Indication: Pneumonia aspiration
     Route: 065
     Dates: start: 20210813, end: 20210819
  21. PIPERACILLIN SODIUM\TAZOBACTAM SODIUM [Concomitant]
     Active Substance: PIPERACILLIN SODIUM\TAZOBACTAM SODIUM
     Route: 065
     Dates: start: 20210916, end: 20210919
  22. CEFTAZIDIME [Concomitant]
     Active Substance: CEFTAZIDIME
     Indication: Pneumonia aspiration
     Route: 065
     Dates: start: 20210908, end: 20210909
  23. CILASTATIN SODIUM\IMIPENEM [Concomitant]
     Active Substance: CILASTATIN SODIUM\IMIPENEM
     Indication: Pneumonia aspiration
     Route: 065
     Dates: start: 20210909, end: 20210916
  24. OXYGEN [Concomitant]
     Active Substance: OXYGEN
     Indication: Pneumonia aspiration
     Dosage: DOSE UNKNOWN
     Route: 055
     Dates: start: 20210808, end: 20211005
  25. DIETARY SUPPLEMENT\PROBIOTICS [Concomitant]
     Active Substance: DIETARY SUPPLEMENT\PROBIOTICS
     Indication: Gastroenteritis
     Route: 048
     Dates: start: 20210722, end: 20210804

REACTIONS (8)
  - Asthenia [Fatal]
  - Anaemia [Fatal]
  - Malnutrition [Fatal]
  - Hallucination [Recovered/Resolved]
  - Electrocardiogram QT prolonged [Not Recovered/Not Resolved]
  - Diarrhoea [Recovering/Resolving]
  - Product use in unapproved indication [Unknown]
  - Off label use [Unknown]

NARRATIVE: CASE EVENT DATE: 20210720
